FAERS Safety Report 18440568 (Version 1)
Quarter: 2020Q4

REPORT INFORMATION
  Report Type: Spontaneous
  Country: US (occurrence: US)
  Receive Date: 20201029
  Receipt Date: 20201029
  Transmission Date: 20210114
  Serious: Yes (Hospitalization)
  Sender: FDA-Public Use
  Company Number: None

PATIENT
  Sex: Male

DRUGS (2)
  1. PROGRAF [Suspect]
     Active Substance: TACROLIMUS
     Indication: LIVER TRANSPLANT
     Dosage: ?          OTHER FREQUENCY:MORNING; 004 MG IN THE MORNINGA ND 0.6 MG IN THE EVENING?
     Route: 048
     Dates: start: 20201002
  2. PROGRAF [Suspect]
     Active Substance: TACROLIMUS
     Dosage: ?          OTHER FREQUENCY:EVEINING;?
     Route: 048

REACTIONS (1)
  - Surgery [None]
